FAERS Safety Report 5201164-2 (Version None)
Quarter: 2007Q1

REPORT INFORMATION
  Report Type: 
  Country: None (occurrence: None)
  Receive Date: 20070108
  Receipt Date: 20070102
  Transmission Date: 20070707
  Serious: Yes (Other)
  Sender: FDA-Public Use
  Company Number: GB-MERCK-0701GBR00018

PATIENT
  Age: 93 Year
  Sex: Female

DRUGS (6)
  1. DECADRON [Suspect]
     Route: 048
     Dates: start: 20060831, end: 20060903
  2. ENOXAPARIN SODIUM [Suspect]
     Indication: IMMOBILE
     Route: 058
     Dates: start: 20060829, end: 20060902
  3. ADALAT [Concomitant]
     Route: 048
     Dates: end: 20060826
  4. AMOXICILLIN + CLAVULANATE POTASSIUM [Concomitant]
     Indication: INFECTION
     Route: 042
     Dates: start: 20060831
  5. METRONIDAZOLE [Concomitant]
     Indication: INFECTION
     Route: 042
     Dates: start: 20060831
  6. TRAZODONE HYDROCHLORIDE [Concomitant]
     Route: 048
     Dates: end: 20060827

REACTIONS (1)
  - MELAENA [None]
